FAERS Safety Report 4705657-3 (Version None)
Quarter: 2005Q2

REPORT INFORMATION
  Report Type: 
  Country: None (occurrence: None)
  Receive Date: 20050630
  Receipt Date: 20050621
  Transmission Date: 20051028
  Serious: Yes (Hospitalization, Other)
  Sender: FDA-Public Use
  Company Number: HQWYE215003JUN05

PATIENT
  Age: 45 Year
  Sex: Male

DRUGS (7)
  1. RAPAMUNE [Suspect]
     Indication: NEPHROPATHY
     Dosage: 1MG/ML DOSE FORM  ORAL
     Route: 048
     Dates: start: 20050201, end: 20050322
  2. PREDNISONE [Concomitant]
  3. METHYLDOPATE HYDROCHLORIDE (METHYLDOPATE HYDROCHLORIDE) [Concomitant]
  4. ADALAT [Concomitant]
  5. PROPRANOLOL [Concomitant]
  6. RANITIDINE HYDROCHLORIDE [Concomitant]
  7. CELLCEPT [Concomitant]

REACTIONS (2)
  - HAEMOLYTIC URAEMIC SYNDROME [None]
  - THROMBOTIC MICROANGIOPATHY [None]
